FAERS Safety Report 9883649 (Version 3)
Quarter: 2014Q1

REPORT INFORMATION
  Report Type: Spontaneous
  Country: JP (occurrence: JP)
  Receive Date: 20140210
  Receipt Date: 20140304
  Transmission Date: 20141002
  Serious: Yes (Hospitalization)
  Sender: FDA-Public Use
  Company Number: JP-ROCHE-1342551

PATIENT
  Age: 71 Year
  Sex: Female
  Weight: 53 kg

DRUGS (21)
  1. HERCEPTIN [Suspect]
     Indication: BREAST CANCER
     Route: 042
     Dates: start: 20070813, end: 20111012
  2. HERCEPTIN [Suspect]
     Indication: BREAST CANCER
     Route: 042
     Dates: start: 20120725, end: 20130509
  3. HERCEPTIN [Suspect]
     Indication: BREAST CANCER
     Route: 042
     Dates: start: 20140116, end: 20140116
  4. PERJETA [Suspect]
     Indication: BREAST CANCER
     Dosage: FORM STRENGTH: 420 MG/14 ML
     Route: 041
     Dates: start: 20140116, end: 20140116
  5. XELODA [Concomitant]
     Indication: BREAST CANCER
     Dosage: DOSAGE IS UNCERTAIN.
     Route: 048
     Dates: start: 20120725, end: 20130123
  6. XELODA [Concomitant]
     Indication: BREAST CANCER
     Dosage: DOSAGE IS UNCERTAIN.
     Route: 048
     Dates: start: 20130509, end: 20130801
  7. AVASTIN [Concomitant]
     Indication: BREAST CANCER
     Dosage: DOSAGE IS UNCERTAIN.
     Route: 041
     Dates: start: 20111109, end: 20120711
  8. FEMARA [Concomitant]
     Indication: BREAST CANCER
     Dosage: DOSAGE IS UNCERTAIN.
     Route: 048
     Dates: start: 20070813
  9. RANMARK [Concomitant]
     Indication: BREAST CANCER
     Route: 058
  10. FASLODEX [Concomitant]
     Indication: BREAST CANCER
     Route: 030
     Dates: start: 201302, end: 20130509
  11. FASLODEX [Concomitant]
     Indication: BREAST CANCER
     Route: 030
  12. TS-1 [Concomitant]
     Indication: BREAST CANCER
     Dosage: DOSAGE IS UNCERTAIN.
     Route: 048
     Dates: start: 20070813, end: 20091111
  13. CISPLATIN [Concomitant]
     Indication: BREAST CANCER
     Dosage: DOSAGE IS UNCERTAIN.
     Route: 013
     Dates: start: 20070815, end: 20080121
  14. CISPLATIN [Concomitant]
     Indication: BREAST CANCER
     Dosage: DOSAGE IS UNCERTAIN.
     Route: 013
     Dates: start: 200911, end: 20101027
  15. 5-FU [Concomitant]
     Indication: BREAST CANCER
     Dosage: DOSAGE IS UNCERTAIN.
     Route: 013
     Dates: start: 20070815, end: 20080121
  16. 5-FU [Concomitant]
     Indication: BREAST CANCER
     Dosage: DOSAGE IS UNCERTAIN.
     Route: 013
     Dates: start: 200911, end: 20101027
  17. DOCETAXEL [Concomitant]
     Indication: BREAST CANCER
     Dosage: DOSAGE IS UNCERTAIN.
     Route: 041
     Dates: start: 20101117, end: 20111012
  18. PACLITAXEL [Concomitant]
     Indication: BREAST CANCER
     Dosage: DOSAGE IS UNCERTAIN.
     Route: 041
     Dates: start: 20111109, end: 20120711
  19. ENDOXAN [Concomitant]
     Indication: BREAST CANCER
     Dosage: DOSAGE IS UNCERTAIN.
     Route: 041
     Dates: start: 20120725, end: 20130123
  20. TYKERB [Concomitant]
     Indication: BREAST CANCER
     Dosage: DOSAGE IS UNCERTAIN.
     Route: 048
     Dates: start: 20130509, end: 20130801
  21. HALAVEN [Concomitant]
     Indication: BREAST CANCER
     Route: 041
     Dates: start: 20130808, end: 20131226

REACTIONS (2)
  - Infusion related reaction [Recovered/Resolved]
  - Pyrexia [Recovered/Resolved]
